FAERS Safety Report 5313178-2 (Version None)
Quarter: 2007Q2

REPORT INFORMATION
  Report Type: 
  Country: None (occurrence: None)
  Receive Date: 20070424
  Receipt Date: 20070416
  Transmission Date: 20071010
  Serious: Yes (Hospitalization)
  Sender: FDA-Public Use
  Company Number: 151021ISR

PATIENT
  Age: 41 Year
  Sex: Female

DRUGS (6)
  1. FLUOROURACIL [Suspect]
     Dosage: 950 MG INTRAVENOUS (NOT OTHERWISE SPECIFIED)
     Route: 042
     Dates: start: 20060927, end: 20061018
  2. CYCLOPHOSPHAMIDE [Suspect]
     Dosage: 950 MG  INTRAVENOUS (NOT OTHERWISE SPECIFIED)
     Route: 042
     Dates: start: 20060927, end: 20061018
  3. METOCLOPRAMIDE HYDROCHLORIDE [Suspect]
     Dosage: ORAL
     Route: 048
     Dates: start: 20060927, end: 20061018
  4. EPIRUBICIN [Suspect]
     Dosage: 190 MG  INTRAVENOUS (NOT OTHERWISE SPECIFIED)
     Route: 042
     Dates: start: 20060927, end: 20061018
  5. ONDANSETRON HCL [Suspect]
     Dosage: ORAL
     Route: 048
     Dates: start: 20060927, end: 20061018
  6. METHYLPREDNISOLONE 16MG TAB [Concomitant]

REACTIONS (12)
  - BRONCHIOLITIS [None]
  - COUGH [None]
  - DYSPNOEA [None]
  - DYSPNOEA AT REST [None]
  - HYPOXIA [None]
  - LYMPHOCYTE PERCENTAGE DECREASED [None]
  - NEUTROPHIL PERCENTAGE DECREASED [None]
  - OBLITERATIVE BRONCHIOLITIS [None]
  - ORTHOPNOEA [None]
  - PULMONARY FUNCTION TEST ABNORMAL [None]
  - RALES [None]
  - VOMITING [None]
